FAERS Safety Report 6587514-3 (Version None)
Quarter: 2010Q1

REPORT INFORMATION
  Report Type: 
  Country: None (occurrence: None)
  Receive Date: 20100204
  Receipt Date: 20100122
  Transmission Date: 20100710
  Serious: No
  Sender: FDA-Public Use
  Company Number: 2010000336

PATIENT
  Age: 65 Year
  Sex: Female
  Weight: 56.6996 kg

DRUGS (4)
  1. FENTORA [Suspect]
     Indication: PAIN
     Dosage: (200 MCG), BU
     Route: 002
     Dates: start: 20080101
  2. FENTANYL-100 [Concomitant]
  3. FLURAZEPAM [Concomitant]
  4. ELMIRON [Concomitant]

REACTIONS (1)
  - DRUG PRESCRIBING ERROR [None]
